FAERS Safety Report 7790364-3 (Version None)
Quarter: 2011Q3

REPORT INFORMATION
  Report Type: 
  Country: None (occurrence: None)
  Receive Date: 20110930
  Receipt Date: 20110919
  Transmission Date: 20111222
  Serious: Yes (Other)
  Sender: FDA-Public Use
  Company Number: MX-ELI_LILLY_AND_COMPANY-MX201109005921

PATIENT
  Age: 54 Year
  Sex: Male

DRUGS (1)
  1. GEMCITABINE HYDROCHLORIDE [Suspect]
     Dosage: UNK, UNKNOWN
     Route: 065

REACTIONS (1)
  - PRESYNCOPE [None]
